FAERS Safety Report 6098633-2 (Version None)
Quarter: 2009Q1

REPORT INFORMATION
  Report Type: 
  Country: None (occurrence: None)
  Receive Date: 20090302
  Receipt Date: 20090223
  Transmission Date: 20090719
  Serious: Yes (Hospitalization)
  Sender: FDA-Public Use
  Company Number: JP-BRISTOL-MYERS SQUIBB COMPANY-14523302

PATIENT
  Sex: Male

DRUGS (2)
  1. CARBIDOPA + LEVODOPA [Suspect]
     Route: 048
     Dates: start: 20080501
  2. MAGNESIUM OXIDE [Concomitant]

REACTIONS (2)
  - FAECES DISCOLOURED [None]
  - SPUTUM DISCOLOURED [None]
